FAERS Safety Report 22338806 (Version 1)
Quarter: 2023Q2

REPORT INFORMATION
  Report Type: Spontaneous
  Country: ID (occurrence: ID)
  Receive Date: 20230518
  Receipt Date: 20230518
  Transmission Date: 20230722
  Serious: Yes (Other)
  Sender: FDA-Public Use
  Company Number: ID-SUN PHARMACEUTICAL INDUSTRIES LTD-2023R1-388539

PATIENT
  Age: 33 Year
  Sex: Male

DRUGS (1)
  1. CLINDAMYCIN [Suspect]
     Active Substance: CLINDAMYCIN
     Indication: Cerebral toxoplasmosis
     Dosage: 600 MILLIGRAM, QID
     Route: 065

REACTIONS (2)
  - Immune thrombocytopenia [Unknown]
  - Cutaneous symptom [Recovered/Resolved]
